FAERS Safety Report 10276159 (Version 4)
Quarter: 2014Q3

REPORT INFORMATION
  Report Type: Spontaneous
  Country: CO (occurrence: CO)
  Receive Date: 20140703
  Receipt Date: 20140821
  Transmission Date: 20150326
  Serious: Yes (Hospitalization)
  Sender: FDA-Public Use
  Company Number: CO-AMGEN-COLSP2014039809

PATIENT
  Age: 52 Year
  Sex: Female

DRUGS (4)
  1. DOXYCYCLINE. [Concomitant]
     Active Substance: DOXYCYCLINE
     Dosage: 100 MG, UNK
  2. CETAPHIL                           /02767901/ [Concomitant]
     Dosage: UNK
  3. VECTIBIX [Suspect]
     Active Substance: PANITUMUMAB
     Indication: COLORECTAL CANCER STAGE IV
     Dosage: 270 MG, EVERY 15 DAYS
     Route: 042
     Dates: start: 20140428, end: 20140606
  4. DESONIDE. [Concomitant]
     Active Substance: DESONIDE
     Dosage: 1 % 15 G, UNK

REACTIONS (6)
  - Metastases to liver [Unknown]
  - Urinary tract infection [Not Recovered/Not Resolved]
  - Onychoclasis [Recovered/Resolved]
  - Disease progression [Unknown]
  - Constipation [Recovered/Resolved]
  - Infrequent bowel movements [Unknown]

NARRATIVE: CASE EVENT DATE: 20140513
